FAERS Safety Report 8986165 (Version 2)
Quarter: 2013Q1

REPORT INFORMATION
  Report Type: Spontaneous
  Country: US (occurrence: None)
  Receive Date: 20121217
  Receipt Date: 20121226
  Transmission Date: 20140127
  Serious: Yes (Other)
  Sender: FDA-Public Use
  Company Number: ACO_33290_2012

PATIENT
  Sex: Female

DRUGS (5)
  1. AMPYRA (DALFAMPRIDINE) TABLET [Suspect]
     Indication: PRODUCT USED FOR UNKNOWN INDICATION
     Dates: start: 2012, end: 2012
  2. ANTIHYPERTENSIVES [Concomitant]
  3. LASIX (FUROSEMIDE) [Concomitant]
  4. CYMBALTA (DULOXETINE HYDROCHLORIDE) [Concomitant]
  5. VITAMIN D (ERGOCALCIFEROL) [Concomitant]

REACTIONS (2)
  - Convulsion [None]
  - Inappropriate schedule of drug administration [None]
